FAERS Safety Report 4981037-0 (Version None)
Quarter: 2006Q2

REPORT INFORMATION
  Report Type: 
  Country: None (occurrence: None)
  Receive Date: 20060418
  Receipt Date: 20060403
  Transmission Date: 20061013
  Serious: Yes (Hospitalization)
  Sender: FDA-Public Use
  Company Number: 223731

PATIENT
  Age: 56 Year
  Sex: Female
  Weight: 88.4 kg

DRUGS (8)
  1. RAPTIVA [Suspect]
     Indication: PSORIASIS
     Dosage: 125 MG, INTRAMUSCULAR
     Route: 030
     Dates: start: 20060312, end: 20060316
  2. HCTZ (HYDROCHLOROTHIAZIDE) [Concomitant]
  3. CLONIDINE [Concomitant]
  4. DIOVAN [Concomitant]
  5. VERELAN (VERAPAMIL HYDROCHLORIDE) [Concomitant]
  6. SYNTHROID [Concomitant]
  7. VICODIN [Concomitant]
  8. EXCEDRIN (MIGRAINE) [Concomitant]

REACTIONS (4)
  - BLOOD PRESSURE INCREASED [None]
  - HEADACHE [None]
  - PAIN [None]
  - VOMITING [None]
